FAERS Safety Report 7656069-4 (Version None)
Quarter: 2011Q3

REPORT INFORMATION
  Report Type: 
  Country: None (occurrence: None)
  Receive Date: 20110804
  Receipt Date: 20110722
  Transmission Date: 20111222
  Serious: Yes (Hospitalization)
  Sender: FDA-Public Use
  Company Number: US-ELI_LILLY_AND_COMPANY-US201106005218

PATIENT
  Age: 59 Year
  Sex: Female
  Weight: 102.49 kg

DRUGS (5)
  1. MOBIC [Concomitant]
     Dosage: 7.5 MG, UNK
  2. CYMBALTA [Suspect]
     Dosage: 30 MG, BID
     Dates: start: 20110501
  3. CYMBALTA [Suspect]
     Indication: DEPRESSIVE SYMPTOM
     Dosage: 30 MG, BID
     Dates: start: 20110310, end: 20110401
  4. VESICARE [Concomitant]
     Dosage: 5 MG, UNK
  5. SYNTHROID [Concomitant]
     Dosage: 150 UG, UNK

REACTIONS (1)
  - HOSPITALISATION [None]
